FAERS Safety Report 5487609-1 (Version None)
Quarter: 2007Q4

REPORT INFORMATION
  Report Type: 
  Country: None (occurrence: None)
  Receive Date: 20071016
  Receipt Date: 20071008
  Transmission Date: 20080405
  Serious: Yes (Hospitalization, Other)
  Sender: FDA-Public Use
  Company Number: US-ELI_LILLY_AND_COMPANY-US200710002034

PATIENT
  Sex: Male

DRUGS (1)
  1. HUMATROPE [Suspect]
     Indication: BRAIN NEOPLASM
     Dosage: UNK, UNKNOWN
     Dates: start: 19950101

REACTIONS (4)
  - HYPOAESTHESIA FACIAL [None]
  - NERVE INJURY [None]
  - PITUITARY TUMOUR BENIGN [None]
  - VISUAL ACUITY REDUCED [None]
